FAERS Safety Report 15659901 (Version 1)
Quarter: 2018Q4

REPORT INFORMATION
  Report Type: Other
  Country: ES (occurrence: ES)
  Receive Date: 20181127
  Receipt Date: 20181127
  Transmission Date: 20190205
  Serious: Yes (Hospitalization)
  Sender: FDA-Public Use
  Company Number: ES-APOTEX-2018AP025019

PATIENT
  Age: 77 Year
  Sex: Female
  Weight: 73 kg

DRUGS (2)
  1. RIVOTRIL [Interacting]
     Active Substance: CLONAZEPAM
     Indication: BACK PAIN
     Dosage: || DOSIS UNIDAD FRECUENCIA: 12.5 MG-MILIGRAMOS || UNIDAD DE FRECUENCIA: 1 D?A
     Route: 048
     Dates: start: 20170514, end: 20170515
  2. TRAMADOL. [Suspect]
     Active Substance: TRAMADOL
     Indication: BACK PAIN
     Dosage: || DOSIS UNIDAD FRECUENCIA: 150 MG-MILIGRAMOS || DOSIS POR TOMA: 50 MG-MILIGRAMOS || N? TOMAS POR...
     Route: 048
     Dates: start: 20170514, end: 20170515

REACTIONS (3)
  - Transcription medication error [Recovered/Resolved]
  - Fall [Recovered/Resolved]
  - Somnolence [Recovered/Resolved]

NARRATIVE: CASE EVENT DATE: 20170516
